FAERS Safety Report 13430041 (Version 1)
Quarter: 2017Q2

REPORT INFORMATION
  Report Type: Spontaneous
  Country: US (occurrence: US)
  Receive Date: 20170412
  Receipt Date: 20170412
  Transmission Date: 20170830
  Serious: Yes (Hospitalization)
  Sender: FDA-Public Use
  Company Number: PHHY2017US049179

PATIENT
  Age: 37 Year
  Sex: Male

DRUGS (1)
  1. VALPROATE SODIUM. [Suspect]
     Active Substance: VALPROATE SODIUM
     Indication: PRODUCT USED FOR UNKNOWN INDICATION
     Dosage: 50 DF, UNK
     Route: 065

REACTIONS (5)
  - Toxicity to various agents [Unknown]
  - Pancreatic pseudocyst [Unknown]
  - Mental status changes [Unknown]
  - Abdominal pain [Unknown]
  - Vomiting [Unknown]
